FAERS Safety Report 8132329-8 (Version None)
Quarter: 2012Q1

REPORT INFORMATION
  Report Type: 
  Country: None (occurrence: None)
  Receive Date: 20120207
  Receipt Date: 20120130
  Transmission Date: 20120608
  Serious: Yes (Other)
  Sender: FDA-Public Use
  Company Number: IMP_05546_2012

PATIENT
  Age: 37 Year
  Sex: Female

DRUGS (3)
  1. BUPROPION HCL [Suspect]
     Indication: PERSONALITY DISORDER
     Dosage: (150 MG QD), (300 MG QD)
  2. BUPROPION HCL [Suspect]
     Indication: INSOMNIA
     Dosage: (150 MG QD), (300 MG QD)
  3. BUPROPION HCL [Suspect]
     Indication: DEPRESSED MOOD
     Dosage: (150 MG QD), (300 MG QD)

REACTIONS (3)
  - SOMNOLENCE [None]
  - POSTICTAL STATE [None]
  - GRAND MAL CONVULSION [None]
